FAERS Safety Report 4376060-3 (Version None)
Quarter: 2004Q2

REPORT INFORMATION
  Report Type: 
  Country: None (occurrence: None)
  Receive Date: 20040611
  Receipt Date: 20040608
  Transmission Date: 20050107
  Serious: Yes (Other)
  Sender: FDA-Public Use
  Company Number: 200411276DE

PATIENT
  Sex: 0

DRUGS (2)
  1. TELFAST [Suspect]
  2. MALIASIN [Suspect]

REACTIONS (1)
  - EPILEPSY [None]
